FAERS Safety Report 12394733 (Version 1)
Quarter: 2016Q2

REPORT INFORMATION
  Report Type: Spontaneous
  Country: US (occurrence: US)
  Receive Date: 20160523
  Receipt Date: 20160523
  Transmission Date: 20160815
  Serious: Yes (Hospitalization)
  Sender: FDA-Public Use
  Company Number: US-SA-2016SA095724

PATIENT
  Age: 30 Year
  Sex: Female
  Weight: 58.06 kg

DRUGS (1)
  1. AMBIEN [Suspect]
     Active Substance: ZOLPIDEM TARTRATE
     Indication: INSOMNIA
     Route: 065
     Dates: start: 1995, end: 1998

REACTIONS (6)
  - Catatonia [Recovering/Resolving]
  - Intentional self-injury [Recovering/Resolving]
  - Memory impairment [Recovering/Resolving]
  - Suicide attempt [Recovering/Resolving]
  - Somnambulism [Recovering/Resolving]
  - Abnormal sleep-related event [Recovering/Resolving]

NARRATIVE: CASE EVENT DATE: 1998
